FAERS Safety Report 13897694 (Version 1)
Quarter: 2017Q3

REPORT INFORMATION
  Report Type: Spontaneous
  Country: US (occurrence: US)
  Receive Date: 20170823
  Receipt Date: 20170823
  Transmission Date: 20171127
  Serious: No
  Sender: FDA-Public Use
  Company Number: US-PFIZER INC-2017364552

PATIENT
  Age: 77 Year
  Sex: Female
  Weight: 81 kg

DRUGS (2)
  1. IBRANCE [Suspect]
     Active Substance: PALBOCICLIB
     Indication: BREAST CANCER METASTATIC
     Dosage: 100 MG, CYCLIC [TAKE IT FOR 21 DAYS THEN SKIP 7 DAYS]
     Route: 048
     Dates: start: 201604
  2. BIOTIN [Suspect]
     Active Substance: BIOTIN
     Indication: SUPPLEMENTATION THERAPY
     Dosage: 5000 UG, 1X/DAY
     Route: 048
     Dates: start: 201605, end: 20170803

REACTIONS (2)
  - Blood thyroid stimulating hormone increased [Unknown]
  - Alopecia [Unknown]

NARRATIVE: CASE EVENT DATE: 20170718
